FAERS Safety Report 6759601-8 (Version None)
Quarter: 2010Q2

REPORT INFORMATION
  Report Type: 
  Country: None (occurrence: None)
  Receive Date: 20100608
  Receipt Date: 20100526
  Transmission Date: 20101027
  Serious: Yes (Hospitalization)
  Sender: FDA-Public Use
  Company Number: US-BIOGENIDEC-2010BI018431

PATIENT
  Age: 59 Year
  Sex: Male

DRUGS (1)
  1. AVONEX [Suspect]
     Route: 030
     Dates: start: 19980401, end: 20100101

REACTIONS (2)
  - PNEUMONIA [None]
  - URINARY TRACT INFECTION [None]
